FAERS Safety Report 4274219-7 (Version None)
Quarter: 2004Q1

REPORT INFORMATION
  Report Type: 
  Country: None (occurrence: None)
  Receive Date: 20040115
  Receipt Date: 20040107
  Transmission Date: 20041129
  Serious: Yes (Hospitalization)
  Sender: FDA-Public Use
  Company Number: 2003-12-1540

PATIENT
  Age: 42 Year
  Sex: Male
  Weight: 93 kg

DRUGS (5)
  1. PEG-INTRON [Suspect]
     Indication: HEPATITIS C
     Dosage: 120-100 UG*WK SUBCUTANEOUS
     Route: 058
     Dates: start: 20010628, end: 20010822
  2. PEG-INTRON [Suspect]
     Indication: HEPATITIS C
     Dosage: 120-100 UG*WK SUBCUTANEOUS
     Route: 058
     Dates: start: 20010823, end: 20020206
  3. REBETOL [Suspect]
     Indication: HEPATITIS C
     Dosage: 1200 MG QD ORAL
     Route: 048
     Dates: start: 20010628, end: 20010822
  4. ACETAMINOPHEN [Concomitant]
  5. MOVICOL (MACROGOL 3350) [Concomitant]

REACTIONS (1)
  - INJECTION SITE ABSCESS [None]
